FAERS Safety Report 18927488 (Version 1)
Quarter: 2021Q1

REPORT INFORMATION
  Report Type: Spontaneous
  Country: US (occurrence: US)
  Receive Date: 20210223
  Receipt Date: 20210223
  Transmission Date: 20210420
  Serious: Yes (Life-Threatening, Hospitalization)
  Sender: FDA-Public Use
  Company Number: None

PATIENT
  Age: 26 Year
  Sex: Female
  Weight: 58.5 kg

DRUGS (1)
  1. HYLENEX RECOMBINANT [Suspect]
     Active Substance: HYALURONIDASE (HUMAN RECOMBINANT)

REACTIONS (6)
  - Skin disorder [None]
  - Pain [None]
  - Nerve injury [None]
  - Skin discolouration [None]
  - Nerve compression [None]
  - Vision blurred [None]

NARRATIVE: CASE EVENT DATE: 20210210
